FAERS Safety Report 5753927-2 (Version None)
Quarter: 2008Q2

REPORT INFORMATION
  Report Type: 
  Country: None (occurrence: None)
  Receive Date: 20080527
  Receipt Date: 20080527
  Transmission Date: 20081010
  Serious: Yes (Life-Threatening)
  Sender: FDA-Public Use
  Company Number: None

PATIENT
  Age: 47 Year
  Sex: Female
  Weight: 53.978 kg

DRUGS (2)
  1. WELLBUTRIN SR [Suspect]
     Indication: DEPRESSION
     Dosage: 150 MG     2      PO
     Route: 048
     Dates: start: 20030810, end: 20080511
  2. KLONOPIN [Concomitant]

REACTIONS (9)
  - ABNORMAL BEHAVIOUR [None]
  - ECONOMIC PROBLEM [None]
  - FLIGHT OF IDEAS [None]
  - GAMBLING [None]
  - ILL-DEFINED DISORDER [None]
  - IMPULSE-CONTROL DISORDER [None]
  - OBSESSIVE THOUGHTS [None]
  - PANIC ATTACK [None]
  - SUICIDAL IDEATION [None]
